FAERS Safety Report 10489636 (Version 1)
Quarter: 2014Q4

REPORT INFORMATION
  Report Type: Spontaneous
  Country: IE (occurrence: IE)
  Receive Date: 20141002
  Receipt Date: 20141002
  Transmission Date: 20150528
  Serious: Yes (Hospitalization)
  Sender: FDA-Public Use
  Company Number: PHHY2014IE125974

PATIENT
  Age: 63 Year
  Sex: Female

DRUGS (1)
  1. ALENDRONATE [Suspect]
     Active Substance: ALENDRONATE SODIUM
     Indication: OSTEOPOROSIS

REACTIONS (7)
  - Femur fracture [Recovering/Resolving]
  - Fall [Unknown]
  - Fracture nonunion [Recovered/Resolved]
  - Fatigue [Recovering/Resolving]
  - Pain in extremity [Recovered/Resolved]
  - Impaired healing [Recovering/Resolving]
  - Circulatory collapse [Recovering/Resolving]
